FAERS Safety Report 12646747 (Version 1)
Quarter: 2016Q3

REPORT INFORMATION
  Report Type: Spontaneous
  Country: AU (occurrence: AU)
  Receive Date: 20160812
  Receipt Date: 20160812
  Transmission Date: 20161109
  Serious: Yes (Other)
  Sender: FDA-Public Use
  Company Number: AU-009507513-1608AUS006181

PATIENT
  Sex: Female

DRUGS (2)
  1. VIEKIRA PAK [Suspect]
     Active Substance: DASABUVIR\OMBITASVIR\PARITAPREVIR\RITONAVIR
     Dosage: UNSPECIFIED
     Route: 048
  2. RIBAVIRIN. [Suspect]
     Active Substance: RIBAVIRIN
     Dosage: 200 MILLIGRAM
     Route: 048
     Dates: start: 20151117

REACTIONS (5)
  - Renal haemorrhage [Unknown]
  - Fall [Unknown]
  - Hypertension [Unknown]
  - Renal embolism [Unknown]
  - Renal disorder [Unknown]
